FAERS Safety Report 8790183 (Version 2)
Quarter: 2013Q4

REPORT INFORMATION
  Report Type: Spontaneous
  Country: US (occurrence: US)
  Receive Date: 20120917
  Receipt Date: 20131101
  Transmission Date: 20140711
  Serious: No
  Sender: FDA-Public Use
  Company Number: US-009507513-1208USA009751

PATIENT
  Sex: Female

DRUGS (3)
  1. HYZAAR [Suspect]
     Indication: HYPERTENSION
     Dosage: 100/12.5
     Dates: start: 2004
  2. NEXIUM [Concomitant]
  3. VITAMINS (UNSPECIFIED) [Concomitant]

REACTIONS (1)
  - Drug ineffective [Not Recovered/Not Resolved]
